FAERS Safety Report 21591765 (Version 2)
Quarter: 2022Q4

REPORT INFORMATION
  Report Type: Spontaneous
  Country: PL (occurrence: PL)
  Receive Date: 20221114
  Receipt Date: 20221118
  Transmission Date: 20230113
  Serious: Yes (Hospitalization)
  Sender: FDA-Public Use
  Company Number: PL-002147023-NVSC2022PL251122

PATIENT
  Age: 5 Year
  Sex: Female

DRUGS (2)
  1. METHOTREXATE [Suspect]
     Active Substance: METHOTREXATE
     Indication: Scleroderma
     Dosage: UNK
     Route: 065
     Dates: start: 201903
  2. PENICILLIN G PROCAINE [Concomitant]
     Active Substance: PENICILLIN G PROCAINE
     Indication: Scleroderma
     Dosage: UNK
     Route: 065

REACTIONS (2)
  - Rebound effect [Unknown]
  - Product use in unapproved indication [Unknown]

NARRATIVE: CASE EVENT DATE: 20210101
